FAERS Safety Report 24468006 (Version 1)
Quarter: 2024Q4

REPORT INFORMATION
  Report Type: Spontaneous
  Country: US (occurrence: US)
  Receive Date: 20241018
  Receipt Date: 20241018
  Transmission Date: 20250115
  Serious: Yes (Hospitalization)
  Sender: GLAXOSMITHKLINE
  Company Number: US-GSK-US2024AMR125733

PATIENT
  Sex: Female

DRUGS (1)
  1. ZEJULA [Suspect]
     Active Substance: NIRAPARIB
     Indication: Ovarian cancer
     Dosage: 200 MG
     Dates: start: 20240806

REACTIONS (5)
  - Platelet count decreased [Recovered/Resolved]
  - Feeling jittery [Unknown]
  - Impatience [Unknown]
  - Fatigue [Unknown]
  - Mood altered [Unknown]
